FAERS Safety Report 16729291 (Version 3)
Quarter: 2019Q3

REPORT INFORMATION
  Report Type: Spontaneous
  Country: US (occurrence: US)
  Receive Date: 20190822
  Receipt Date: 20190926
  Transmission Date: 20191005
  Serious: Yes (Other)
  Sender: FDA-Public Use
  Company Number: US-IGSA-SR10008949

PATIENT
  Age: 57 Year
  Weight: 85.95 kg

DRUGS (2)
  1. GAMUNEX-C [Suspect]
     Active Substance: HUMAN IMMUNOGLOBULIN G
     Indication: CHRONIC INFLAMMATORY DEMYELINATING POLYRADICULONEUROPATHY
     Dosage: 550 ML, UNKNOWN
     Route: 042
     Dates: start: 20190711
  2. CEFTRIAXONE SODIUM. [Concomitant]
     Active Substance: CEFTRIAXONE SODIUM

REACTIONS (2)
  - Pruritus generalised [Unknown]
  - Urticaria [Unknown]

NARRATIVE: CASE EVENT DATE: 20190711
